FAERS Safety Report 20108634 (Version 2)
Quarter: 2023Q1

REPORT INFORMATION
  Report Type: Spontaneous
  Country: US (occurrence: US)
  Receive Date: 20211124
  Receipt Date: 20230118
  Transmission Date: 20230417
  Serious: Yes (Other)
  Sender: FDA-Public Use
  Company Number: US-MYLANLABS-2021M1087069

PATIENT
  Age: 70 Year
  Sex: Female

DRUGS (6)
  1. METHOTREXATE [Suspect]
     Active Substance: METHOTREXATE
     Indication: Rheumatoid arthritis
     Dosage: UNK
     Route: 065
  2. RITUXIMAB [Suspect]
     Active Substance: RITUXIMAB
     Indication: Rheumatoid arthritis
     Dosage: UNK
     Route: 065
  3. IMMUNE GLOBULIN NOS [Concomitant]
     Active Substance: IMMUNE GLOBULIN NOS
     Indication: Acquired Von Willebrand^s disease
     Dosage: NEARLY 1000 MG/KG/DOSE
     Route: 042
  4. IMMUNE GLOBULIN NOS [Concomitant]
     Active Substance: IMMUNE GLOBULIN NOS
     Dosage: MAINTENANCE LOW DOSE NEARLY 1000 MG/KG/DOSE EVERY 4 WEEKS
     Route: 042
  5. VON WILLEBRAND FACTOR HUMAN [Concomitant]
     Active Substance: VON WILLEBRAND FACTOR HUMAN
     Indication: Acquired Von Willebrand^s disease
     Dosage: HIGH DOSES
     Route: 065
  6. EMICIZUMAB [Concomitant]
     Active Substance: EMICIZUMAB
     Indication: Von Willebrand^s disease
     Dosage: 1.5 MILLIGRAM/KILOGRAM, QW
     Route: 065

REACTIONS (1)
  - Drug ineffective [Unknown]
